FAERS Safety Report 24344254 (Version 1)
Quarter: 2024Q3

REPORT INFORMATION
  Report Type: Spontaneous
  Country: US (occurrence: None)
  Receive Date: 20240919
  Receipt Date: 20240919
  Transmission Date: 20241016
  Serious: No
  Sender: Public
  Company Number: None

PATIENT
  Age: 36 Year
  Sex: 0

DRUGS (1)
  1. QULIPTA [Suspect]
     Active Substance: ATOGEPANT

REACTIONS (2)
  - Constipation [None]
  - Abnormal dreams [None]
